FAERS Safety Report 5418844-6 (Version None)
Quarter: 2007Q3

REPORT INFORMATION
  Report Type: 
  Country: None (occurrence: None)
  Receive Date: 20070718
  Receipt Date: 20060717
  Transmission Date: 20080115
  Serious: Yes (Hospitalization)
  Sender: FDA-Public Use
  Company Number: 2006090186

PATIENT
  Age: 53 Year
  Sex: Male
  Weight: 73.4827 kg

DRUGS (5)
  1. CELEBREX [Suspect]
     Indication: MUSCULOSKELETAL PAIN
     Dosage: 200 MG (200 MG, 1 IN 1 D)
     Dates: start: 20020606, end: 20030117
  2. CELEBREX [Suspect]
     Indication: NECK PAIN
     Dosage: 200 MG (200 MG, 1 IN 1 D)
     Dates: start: 20020606, end: 20030117
  3. BEXTRA [Suspect]
     Indication: MUSCULOSKELETAL PAIN
     Dosage: 20 MG (20 MG, 1 IN 1 D)
     Dates: start: 20020911, end: 20031103
  4. BEXTRA [Suspect]
     Indication: NECK PAIN
     Dosage: 20 MG (20 MG, 1 IN 1 D)
     Dates: start: 20020911, end: 20031103
  5. BEXTRA [Suspect]
     Indication: SURGERY
     Dosage: 20 MG (20 MG, 1 IN 1 D)
     Dates: start: 20020911, end: 20031103

REACTIONS (1)
  - MYOCARDIAL INFARCTION [None]
